FAERS Safety Report 24191715 (Version 2)
Quarter: 2024Q3

REPORT INFORMATION
  Report Type: Spontaneous
  Country: US (occurrence: None)
  Receive Date: 20240809
  Receipt Date: 20240902
  Transmission Date: 20241016
  Serious: No
  Sender: ASTRAZENECA
  Company Number: 2024A172445

PATIENT
  Age: 65 Year
  Sex: Female
  Weight: 140.6 kg

DRUGS (1)
  1. BUDESONIDE\FORMOTEROL [Suspect]
     Active Substance: BUDESONIDE\FORMOTEROL
     Dosage: 2 PUFFS, TWO TIMES A DAY
     Route: 055
     Dates: start: 202404

REACTIONS (5)
  - Visual impairment [Unknown]
  - Product dose omission issue [Unknown]
  - Device use issue [Unknown]
  - Wrong technique in device usage process [Unknown]
  - Device issue [Unknown]

NARRATIVE: CASE EVENT DATE: 20240726
